FAERS Safety Report 21585237 (Version 4)
Quarter: 2022Q4

REPORT INFORMATION
  Report Type: Report from Study
  Country: AU (occurrence: AU)
  Receive Date: 20221111
  Receipt Date: 20221209
  Transmission Date: 20230112
  Serious: Yes (Life-Threatening, Hospitalization, Other)
  Sender: FDA-Public Use
  Company Number: AU-BRISTOL-MYERS SQUIBB COMPANY-2022-126835

PATIENT
  Age: 80 Year
  Sex: Female
  Weight: 51 kg

DRUGS (6)
  1. NIVOLUMAB [Suspect]
     Active Substance: NIVOLUMAB
     Indication: Malignant melanoma
     Route: 042
     Dates: start: 20220726, end: 20220920
  2. BETAMETHASONE [Concomitant]
     Active Substance: BETAMETHASONE
     Indication: Product used for unknown indication
     Dosage: 1 UNIT NOS
     Route: 061
     Dates: start: 20220816
  3. VENLAFAXINE SR [Concomitant]
     Indication: Product used for unknown indication
     Route: 048
     Dates: start: 202006
  4. THYROXINE [Concomitant]
     Active Substance: LEVOTHYROXINE
     Indication: Product used for unknown indication
     Route: 048
     Dates: start: 2017
  5. FLUVAX [Concomitant]
     Active Substance: INFLUENZA VIRUS VACCINE
     Indication: Prophylaxis
     Route: 030
     Dates: start: 202202
  6. TETANUS ANTITOXIN [Concomitant]
     Active Substance: TETANUS ANTITOXIN
     Indication: Prophylaxis
     Route: 030
     Dates: start: 20220917

REACTIONS (1)
  - Immune-mediated hypophysitis [Recovered/Resolved]

NARRATIVE: CASE EVENT DATE: 20221024
